FAERS Safety Report 4497427-9 (Version None)
Quarter: 2004Q4

REPORT INFORMATION
  Report Type: 
  Country: None (occurrence: None)
  Receive Date: 20041110
  Receipt Date: 20041104
  Transmission Date: 20050328
  Serious: Yes (Death, Other)
  Sender: FDA-Public Use
  Company Number: PHBS2004JP14799

PATIENT
  Age: 79 Year
  Sex: Male

DRUGS (9)
  1. VOLTAREN [Suspect]
     Indication: PYREXIA
     Dosage: 75 MG/DAY
     Route: 048
     Dates: start: 20011028, end: 20011030
  2. CRAVIT [Concomitant]
     Route: 065
  3. FLOMOX [Concomitant]
     Route: 065
  4. FOSMICIN S [Concomitant]
  5. MYDRIN P [Concomitant]
  6. RINDERON A [Concomitant]
  7. KEFRAL [Concomitant]
     Indication: PYREXIA
     Dates: start: 20011028, end: 20011030
  8. HUSTAZOL [Concomitant]
     Indication: PYREXIA
     Dates: start: 20011028, end: 20011030
  9. KOLANTYL GEL [Concomitant]
     Indication: PYREXIA
     Dates: start: 20011028, end: 20011030

REACTIONS (11)
  - ALANINE AMINOTRANSFERASE INCREASED [None]
  - ANTINEUTROPHIL CYTOPLASMIC ANTIBODY POSITIVE [None]
  - ASPARTATE AMINOTRANSFERASE INCREASED [None]
  - C-REACTIVE PROTEIN INCREASED [None]
  - GAMMA-GLUTAMYLTRANSFERASE INCREASED [None]
  - GASTROINTESTINAL HAEMORRHAGE [None]
  - GLOMERULONEPHRITIS [None]
  - HEPATIC FUNCTION ABNORMAL [None]
  - RENAL FAILURE ACUTE [None]
  - SCLERITIS [None]
  - WHITE BLOOD CELL COUNT INCREASED [None]
